FAERS Safety Report 5329525-1 (Version None)
Quarter: 2007Q1

REPORT INFORMATION
  Report Type: 
  Country: None (occurrence: None)
  Receive Date: 20070223
  Receipt Date: 20060329
  Transmission Date: 20070707
  Serious: Yes (Life-Threatening, Hospitalization)
  Sender: FDA-Public Use
  Company Number: WAES 0603USA04503

PATIENT
  Age: 80 Year
  Sex: Male

DRUGS (2)
  1. ZOCOR [Suspect]
     Indication: HYPERLIPIDAEMIA
     Dosage: 40 MG/DAILY/PO
     Route: 048
     Dates: start: 20050301, end: 20060322
  2. ZOMIG [Concomitant]

REACTIONS (1)
  - JAUNDICE CHOLESTATIC [None]
